FAERS Safety Report 9452770 (Version 1)
Quarter: 2013Q3

REPORT INFORMATION
  Report Type: Spontaneous
  Country: US (occurrence: None)
  Receive Date: 20130808
  Receipt Date: 20130808
  Transmission Date: 20140515
  Serious: Yes (Hospitalization)
  Sender: FDA-Public Use
  Company Number: None

PATIENT
  Age: 72 None
  Sex: Male
  Weight: 100.9 kg

DRUGS (2)
  1. LISINOPRIL [Suspect]
     Indication: DIABETES MELLITUS
     Route: 048
     Dates: start: 20011118, end: 20130621
  2. LISINOPRIL [Suspect]
     Route: 048
     Dates: start: 20011118, end: 20130621

REACTIONS (3)
  - Cough [None]
  - Epiglottic oedema [None]
  - Angioedema [None]
